FAERS Safety Report 21850065 (Version 2)
Quarter: 2023Q1

REPORT INFORMATION
  Report Type: Report from Study
  Country: US (occurrence: US)
  Receive Date: 20230111
  Receipt Date: 20230112
  Transmission Date: 20230417
  Serious: No
  Sender: FDA-Public Use
  Company Number: US-ABBVIE-4235949

PATIENT
  Sex: Male

DRUGS (1)
  1. HUMIRA [Suspect]
     Active Substance: ADALIMUMAB
     Indication: Crohn^s disease
     Dosage: CITRATE
     Route: 058
     Dates: start: 20220109

REACTIONS (3)
  - Adverse food reaction [Unknown]
  - Thirst [Unknown]
  - Crohn^s disease [Recovered/Resolved]
